FAERS Safety Report 22314979 (Version 4)
Quarter: 2024Q3

REPORT INFORMATION
  Report Type: Spontaneous
  Country: RO (occurrence: RO)
  Receive Date: 20230512
  Receipt Date: 20240807
  Transmission Date: 20241016
  Serious: Yes (Other)
  Sender: TAKEDA
  Company Number: RO-TAKEDA-2023TUS040259

PATIENT
  Age: 23 Year
  Sex: Female
  Weight: 60 kg

DRUGS (12)
  1. HUMAN IMMUNOGLOBULIN G [Suspect]
     Active Substance: HUMAN IMMUNOGLOBULIN G
     Indication: Dermatitis atopic
     Dosage: UNK
     Route: 042
  2. HUMAN IMMUNOGLOBULIN G [Suspect]
     Active Substance: HUMAN IMMUNOGLOBULIN G
     Indication: Urticaria
  3. PRIVIGEN [Suspect]
     Active Substance: HUMAN IMMUNOGLOBULIN G
     Indication: Dermatitis atopic
     Dosage: 10 GRAM
     Route: 042
     Dates: start: 20210504, end: 20210504
  4. PRIVIGEN [Suspect]
     Active Substance: HUMAN IMMUNOGLOBULIN G
     Dosage: 20 GRAM
     Route: 042
  5. PRIVIGEN [Suspect]
     Active Substance: HUMAN IMMUNOGLOBULIN G
     Dosage: 25 MILLILITER
     Route: 042
  6. PRIVIGEN [Suspect]
     Active Substance: HUMAN IMMUNOGLOBULIN G
     Dosage: 200 MILLILITER
     Route: 042
  7. DUPILUMAB [Concomitant]
     Active Substance: DUPILUMAB
     Dosage: UNK
     Route: 065
  8. BENRALIZUMAB [Concomitant]
     Active Substance: BENRALIZUMAB
     Dosage: UNK
     Route: 065
  9. OMALIZUMAB [Concomitant]
     Active Substance: OMALIZUMAB
     Dosage: UNK
     Route: 065
  10. HYDROCORTISONE HEMISUCCINATE [Concomitant]
     Active Substance: HYDROCORTISONE HEMISUCCINATE
     Indication: Premedication
     Dosage: 100 MILLIGRAM
     Route: 065
  11. DESLORATADINUM [Concomitant]
     Indication: Premedication
     Dosage: 20 MILLIGRAM
     Route: 065
  12. TACROLIMUS [Concomitant]
     Active Substance: TACROLIMUS
     Indication: Dermatitis atopic
     Dosage: UNK UNK, QD
     Route: 061

REACTIONS (12)
  - Lymphadenopathy [Recovered/Resolved]
  - Asthenia [Recovered/Resolved]
  - Oedema [Unknown]
  - Erythema [Recovered/Resolved]
  - Serum sickness [Recovered/Resolved]
  - Aspartate aminotransferase increased [Recovered/Resolved]
  - Eosinophil count increased [Unknown]
  - Red blood cell sedimentation rate increased [Recovered/Resolved]
  - Face oedema [Recovered/Resolved]
  - Hypersensitivity [Unknown]
  - Conjunctivitis [Unknown]
  - Off label use [Recovered/Resolved]

NARRATIVE: CASE EVENT DATE: 20210506
